FAERS Safety Report 23919811 (Version 1)
Quarter: 2024Q2

REPORT INFORMATION
  Report Type: Spontaneous
  Country: US (occurrence: None)
  Receive Date: 20240529
  Receipt Date: 20240529
  Transmission Date: 20240716
  Serious: Yes (Hospitalization)
  Sender: FDA-Public Use
  Company Number: None

PATIENT
  Age: 71 Year
  Sex: Female

DRUGS (5)
  1. RETEVMO [Suspect]
     Active Substance: SELPERCATINIB
     Indication: Metastases to central nervous system
     Dosage: FREQUENCY : TWICE A DAY;?
     Route: 048
     Dates: start: 20210506
  2. ELIQUIS [Concomitant]
     Active Substance: APIXABAN
  3. FUROSEMIDE [Concomitant]
     Active Substance: FUROSEMIDE
  4. LISINOPRIL [Concomitant]
  5. TAMOXIFEN [Concomitant]

REACTIONS (2)
  - Vascular access placement [None]
  - Therapy interrupted [None]

NARRATIVE: CASE EVENT DATE: 20240523
